FAERS Safety Report 4295352-X (Version None)
Quarter: 2004Q1

REPORT INFORMATION
  Report Type: 
  Country: None (occurrence: None)
  Receive Date: 20040216
  Receipt Date: 20030624
  Transmission Date: 20041129
  Serious: No
  Sender: FDA-Public Use
  Company Number: US-GLAXOSMITHKLINE-A0413749A

PATIENT
  Age: 37 Year
  Sex: Female

DRUGS (7)
  1. LAMICTAL [Suspect]
     Indication: BIPOLAR DISORDER
     Dosage: 200MG TWICE PER DAY
     Route: 048
     Dates: start: 20020401
  2. TETRACYCLINE [Suspect]
     Indication: INFECTION
     Route: 065
  3. TOPAMAX [Concomitant]
  4. EFFEXOR [Concomitant]
  5. ZYPREXA [Concomitant]
  6. ABILIFY [Concomitant]
     Route: 065
  7. DALMANE [Concomitant]
     Route: 065

REACTIONS (2)
  - DRUG INTERACTION [None]
  - RASH PAPULAR [None]
